FAERS Safety Report 18819102 (Version 1)
Quarter: 2021Q1

REPORT INFORMATION
  Report Type: Spontaneous
  Country: US (occurrence: US)
  Receive Date: 20210201
  Receipt Date: 20210201
  Transmission Date: 20210419
  Serious: No
  Sender: FDA-Public Use
  Company Number: US-B.I. PHARMACEUTICALS,INC./RIDGEFIELD-2021-BI-079975

PATIENT
  Age: 72 Year
  Sex: Male

DRUGS (1)
  1. CATAPRES [Suspect]
     Active Substance: CLONIDINE HYDROCHLORIDE
     Indication: HYPERTENSION
     Dosage: 0.2MG PATCH PER WEEK

REACTIONS (2)
  - Skin irritation [Unknown]
  - Pruritus [Unknown]

NARRATIVE: CASE EVENT DATE: 202101
